FAERS Safety Report 6144711-9 (Version None)
Quarter: 2009Q2

REPORT INFORMATION
  Report Type: 
  Country: None (occurrence: None)
  Receive Date: 20090406
  Receipt Date: 20090401
  Transmission Date: 20091009
  Serious: Yes (Hospitalization)
  Sender: FDA-Public Use
  Company Number: Z0000783A

PATIENT
  Age: 69 Year
  Sex: Male
  Weight: 83 kg

DRUGS (4)
  1. SALMETEROL/FLUTICASONE PROPIONATE 50/250UG [Suspect]
     Indication: CHRONIC OBSTRUCTIVE PULMONARY DISEASE
     Route: 055
     Dates: start: 20090304, end: 20090309
  2. TIOTROPIUM [Suspect]
     Indication: CHRONIC OBSTRUCTIVE PULMONARY DISEASE
     Dosage: 18MCG PER DAY
     Route: 055
     Dates: start: 20090204, end: 20090309
  3. FLOMAX [Concomitant]
     Indication: URINARY RETENTION
     Dosage: .4MG PER DAY
     Route: 048
     Dates: start: 20090310, end: 20090313
  4. PROSCAR [Concomitant]
     Indication: URINARY RETENTION
     Dosage: 5MG PER DAY
     Route: 048
     Dates: start: 20090314

REACTIONS (1)
  - URINARY RETENTION [None]
